FAERS Safety Report 7783298-1 (Version None)
Quarter: 2011Q3

REPORT INFORMATION
  Report Type: 
  Country: None (occurrence: None)
  Receive Date: 20110928
  Receipt Date: 20110919
  Transmission Date: 20111222
  Serious: Yes (Other)
  Sender: FDA-Public Use
  Company Number: US-BAYER-2011-070508

PATIENT
  Age: 23 Year
  Sex: Female
  Weight: 89 kg

DRUGS (10)
  1. YAZ [Suspect]
     Indication: ORAL CONTRACEPTION
  2. DOXEPIN [Concomitant]
     Dosage: 10 MG, UNK
     Route: 048
     Dates: start: 20090707
  3. HYDROCODONE BITARTRATE AND ACETAMINOPHEN [Concomitant]
     Dosage: UNK
     Route: 048
     Dates: start: 20090331
  4. ALPRAZOLAM [Concomitant]
     Dosage: 0.5 MG, UNK
     Route: 048
     Dates: start: 20090803
  5. LEXAPRO [Concomitant]
     Dosage: 20 MG, UNK
     Route: 048
     Dates: start: 20090715, end: 20090803
  6. YASMIN [Suspect]
     Indication: ORAL CONTRACEPTION
  7. DROSPIRENONE AND ETHINYL ESTRADIOL [Suspect]
     Indication: ORAL CONTRACEPTION
     Dosage: UNK
     Dates: start: 20090201, end: 20090801
  8. LORATADINE [Concomitant]
     Dosage: 10 MG, UNK
     Route: 048
     Dates: start: 20090217, end: 20090528
  9. AMOXICILLIN [Concomitant]
     Dosage: 500 MG, UNK
     Route: 048
     Dates: start: 20090218
  10. NASONEX [Concomitant]
     Dosage: 50 UNK, UNK
     Route: 055
     Dates: start: 20090217

REACTIONS (5)
  - DISCOMFORT [None]
  - PAIN [None]
  - CHOLECYSTITIS CHRONIC [None]
  - CHOLECYSTECTOMY [None]
  - MENTAL DISORDER [None]
